FAERS Safety Report 15546848 (Version 7)
Quarter: 2019Q1

REPORT INFORMATION
  Report Type: Report from Study
  Country: US (occurrence: US)
  Receive Date: 20181024
  Receipt Date: 20190117
  Transmission Date: 20190417
  Serious: Yes (Hospitalization)
  Sender: FDA-Public Use
  Company Number: US-EISAI MEDICAL RESEARCH-EC-2018-046395

PATIENT
  Age: 16 Year
  Sex: Female
  Weight: 38.6 kg

DRUGS (3)
  1. ERIBULIN [Suspect]
     Active Substance: ERIBULIN
     Indication: EWING^S SARCOMA RECURRENT
     Route: 041
     Dates: start: 20180709, end: 201808
  2. ERIBULIN [Suspect]
     Active Substance: ERIBULIN
     Route: 041
     Dates: start: 20180821, end: 20180925
  3. ERIBULIN [Suspect]
     Active Substance: ERIBULIN
     Dosage: UNKNOWN
     Route: 041
     Dates: start: 2018, end: 20181127

REACTIONS (1)
  - Neuralgia [Recovering/Resolving]

NARRATIVE: CASE EVENT DATE: 20181015
